FAERS Safety Report 16544529 (Version 3)
Quarter: 2019Q3

REPORT INFORMATION
  Report Type: Spontaneous
  Country: JP (occurrence: JP)
  Receive Date: 20190709
  Receipt Date: 20190909
  Transmission Date: 20191004
  Serious: Yes (Death, Life-Threatening, Other)
  Sender: FDA-Public Use
  Company Number: JP-BRISTOL-MYERS SQUIBB COMPANY-BMS-2019-061129

PATIENT
  Age: 80 Year
  Sex: Male
  Weight: 62 kg

DRUGS (1)
  1. OPDIVO [Suspect]
     Active Substance: NIVOLUMAB
     Indication: METASTATIC RENAL CELL CARCINOMA
     Dosage: 240 MG
     Route: 041
     Dates: start: 20190514

REACTIONS (4)
  - Myositis [Fatal]
  - Malignant neoplasm progression [Fatal]
  - Blood creatine phosphokinase increased [Unknown]
  - Myasthenia gravis [Fatal]

NARRATIVE: CASE EVENT DATE: 201906
